FAERS Safety Report 8462422-1 (Version None)
Quarter: 2012Q2

REPORT INFORMATION
  Report Type: 
  Country: None (occurrence: None)
  Receive Date: 20120625
  Receipt Date: 20120614
  Transmission Date: 20120825
  Serious: Yes (Hospitalization, Other)
  Sender: FDA-Public Use
  Company Number: US-NOVOPROD-353910

PATIENT
  Age: 48 Year
  Sex: Male
  Weight: 148 kg

DRUGS (2)
  1. VICTOZA [Suspect]
     Indication: TYPE 2 DIABETES MELLITUS
     Dosage: 0.6 MG, QD
     Route: 058
     Dates: start: 20120609, end: 20120613
  2. METFORMIN HCL [Concomitant]
     Indication: TYPE 2 DIABETES MELLITUS
     Dosage: 1000 MG, BID
     Route: 048

REACTIONS (5)
  - BLOOD MAGNESIUM DECREASED [None]
  - VOMITING [None]
  - NAUSEA [None]
  - BLOOD POTASSIUM DECREASED [None]
  - MUSCLE SPASMS [None]
